FAERS Safety Report 7830931-1 (Version None)
Quarter: 2011Q4

REPORT INFORMATION
  Report Type: 
  Country: None (occurrence: None)
  Receive Date: 20111021
  Receipt Date: 20111018
  Transmission Date: 20120403
  Serious: Yes (Other)
  Sender: FDA-Public Use
  Company Number: US-PFIZER INC-2011166641

PATIENT
  Sex: Male

DRUGS (5)
  1. THYROID TAB [Concomitant]
     Indication: THYROIDITIS
     Dosage: 150 MG, UNK
     Dates: start: 20080101
  2. CHANTIX [Suspect]
     Dosage: 1 MG, UNK
     Route: 048
     Dates: start: 20110513, end: 20110714
  3. FLOVENT [Concomitant]
     Indication: ASTHMA
     Dosage: 100 UG, UNK
     Dates: start: 20100101
  4. VENTOLIN [Concomitant]
     Indication: ASTHMA
     Dosage: UNK
     Dates: start: 20100101
  5. CHANTIX [Suspect]
     Indication: SMOKING CESSATION THERAPY
     Dosage: UNK
     Dates: start: 20110101

REACTIONS (3)
  - ATRIAL FIBRILLATION [None]
  - DYSPNOEA [None]
  - STRESS [None]
